FAERS Safety Report 8574494-4 (Version None)
Quarter: 2012Q3

REPORT INFORMATION
  Report Type: 
  Country: None (occurrence: None)
  Receive Date: 20120806
  Receipt Date: 20111102
  Transmission Date: 20120928
  Serious: No
  Sender: FDA-Public Use
  Company Number: US-ABBOTT-11P-163-0871538-00

PATIENT
  Sex: Female
  Weight: 65.376 kg

DRUGS (3)
  1. AMITRIPTYLINE HCL [Suspect]
     Indication: HEADACHE
     Dosage: AT HOUR OF SLEEP
     Route: 048
     Dates: start: 20111005
  2. DEPAKOTE ER [Suspect]
     Indication: HEADACHE
     Dosage: AT HOUR OF SLEEP
     Route: 048
     Dates: start: 20111005, end: 20111030
  3. MAXALT [Concomitant]
     Indication: HEADACHE

REACTIONS (3)
  - PRURITUS [None]
  - WEIGHT INCREASED [None]
  - RASH [None]
